FAERS Safety Report 16767775 (Version 2)
Quarter: 2019Q3

REPORT INFORMATION
  Report Type: Spontaneous
  Country: AU (occurrence: AU)
  Receive Date: 20190903
  Receipt Date: 20190911
  Transmission Date: 20191005
  Serious: Yes (Disabling)
  Sender: FDA-Public Use
  Company Number: AU-PFIZER INC-2019322823

PATIENT
  Age: 63 Year
  Sex: Female
  Weight: 75 kg

DRUGS (2)
  1. EUTROXSIG [Concomitant]
     Active Substance: LEVOTHYROXINE SODIUM
     Indication: HYPOTHYROIDISM
     Dosage: 50 UG, DAILY
     Route: 048
  2. PRISTIQ EXTENDED-RELEASE [Suspect]
     Active Substance: DESVENLAFAXINE SUCCINATE
     Indication: DEPRESSION
     Dosage: 100 MG, DAILY
     Route: 048
     Dates: start: 20181017

REACTIONS (1)
  - Depression [Recovered/Resolved]

NARRATIVE: CASE EVENT DATE: 20190620
